FAERS Safety Report 6924668-0 (Version None)
Quarter: 2010Q3

REPORT INFORMATION
  Report Type: 
  Country: None (occurrence: None)
  Receive Date: 20100816
  Receipt Date: 20100809
  Transmission Date: 20110219
  Serious: No
  Sender: FDA-Public Use
  Company Number: US-BIOGENIDEC-2010BI021477

PATIENT
  Age: 54 Year
  Sex: Male

DRUGS (1)
  1. TYSABRI [Suspect]
     Indication: MULTIPLE SCLEROSIS
     Route: 042
     Dates: start: 20090126, end: 20100504

REACTIONS (6)
  - COGNITIVE DISORDER [None]
  - FATIGUE [None]
  - FRUSTRATION [None]
  - GAIT DISTURBANCE [None]
  - HYPOAESTHESIA [None]
  - VISUAL IMPAIRMENT [None]
